FAERS Safety Report 5622360-6 (Version None)
Quarter: 2008Q1

REPORT INFORMATION
  Report Type: 
  Country: None (occurrence: None)
  Receive Date: 20080211
  Receipt Date: 20080204
  Transmission Date: 20080703
  Serious: Yes (Hospitalization)
  Sender: FDA-Public Use
  Company Number: US-PFIZER INC-2008010979

PATIENT
  Age: 55 Year
  Sex: Female

DRUGS (3)
  1. ANTITHYMOCYTE IMMUNOGLOBULIN SOLUTION, STERILE [Suspect]
  2. MYCOPHENOLATE MOFETIL [Concomitant]
  3. SIROLIMUS [Concomitant]

REACTIONS (2)
  - COMA [None]
  - ENCEPHALOPATHY [None]
